FAERS Safety Report 8400729-4 (Version None)
Quarter: 2012Q2

REPORT INFORMATION
  Report Type: 
  Country: None (occurrence: None)
  Receive Date: 20120531
  Receipt Date: 20120524
  Transmission Date: 20120825
  Serious: Yes (Disabling, Other)
  Sender: FDA-Public Use
  Company Number: US-MERCK-1111USA02472

PATIENT
  Age: 56 Year
  Sex: Female

DRUGS (3)
  1. FOSAMAX [Suspect]
     Route: 048
     Dates: start: 20030101, end: 20120401
  2. ALENDRONATE SODIUM [Suspect]
     Route: 048
     Dates: start: 20080916, end: 20100320
  3. FOSAMAX [Suspect]
     Indication: OSTEOPOROSIS
     Route: 048
     Dates: start: 20030101, end: 20090101

REACTIONS (24)
  - ADVERSE EVENT [None]
  - ANXIETY [None]
  - HYPOTHYROIDISM [None]
  - RESTLESS LEGS SYNDROME [None]
  - TOOTH ABSCESS [None]
  - EYE INFECTION [None]
  - GINGIVAL DISORDER [None]
  - RHEUMATOID ARTHRITIS [None]
  - DENTAL CARIES [None]
  - BACK PAIN [None]
  - ROAD TRAFFIC ACCIDENT [None]
  - INSOMNIA [None]
  - INTERVERTEBRAL DISC PROTRUSION [None]
  - EYE DISORDER [None]
  - HYPERSENSITIVITY [None]
  - FISTULA [None]
  - OSTEONECROSIS OF JAW [None]
  - TOOTH FRACTURE [None]
  - TOOTH DISORDER [None]
  - OSTEOMYELITIS [None]
  - HEADACHE [None]
  - ATROPHIC VULVOVAGINITIS [None]
  - NECK INJURY [None]
  - HYPERTENSION [None]
